FAERS Safety Report 25128985 (Version 2)
Quarter: 2025Q2

REPORT INFORMATION
  Report Type: Spontaneous
  Country: US (occurrence: US)
  Receive Date: 20250327
  Receipt Date: 20250516
  Transmission Date: 20250717
  Serious: No
  Sender: SANOFI AVENTIS
  Company Number: US-SA-2025SA088823

PATIENT
  Age: 88 Year
  Sex: Male
  Weight: 77.27 kg

DRUGS (12)
  1. DUPIXENT [Suspect]
     Active Substance: DUPILUMAB
     Indication: Dermatitis atopic
     Dosage: 300 MG, QOW
     Route: 058
     Dates: start: 20250305
  2. FISH OIL [Concomitant]
     Active Substance: FISH OIL
  3. ALLOPURINOL [Concomitant]
     Active Substance: ALLOPURINOL
  4. SIMVASTATIN [Concomitant]
     Active Substance: SIMVASTATIN
  5. LISINOPRIL [Concomitant]
     Active Substance: LISINOPRIL
  6. HYDROCHLOROTHIAZIDE [Concomitant]
     Active Substance: HYDROCHLOROTHIAZIDE
  7. METOPROLOL SUCCINATE [Concomitant]
     Active Substance: METOPROLOL SUCCINATE
  8. ELIQUIS [Concomitant]
     Active Substance: APIXABAN
  9. IRON [Concomitant]
     Active Substance: IRON
  10. METHOTREXATE [Concomitant]
     Active Substance: METHOTREXATE
  11. LEVOMEFOLIC ACID\METHYLCOBALAMIN\TURMERIC [Concomitant]
     Active Substance: LEVOMEFOLIC ACID\METHYLCOBALAMIN\TURMERIC
  12. VITAMINS [Concomitant]
     Active Substance: VITAMINS

REACTIONS (8)
  - Arthropathy [Not Recovered/Not Resolved]
  - Dry skin [Not Recovered/Not Resolved]
  - Erythema [Not Recovered/Not Resolved]
  - Pain of skin [Not Recovered/Not Resolved]
  - Skin exfoliation [Not Recovered/Not Resolved]
  - Pruritus [Not Recovered/Not Resolved]
  - Injection site rash [Recovered/Resolved]
  - Injection site erythema [Recovered/Resolved]

NARRATIVE: CASE EVENT DATE: 20250101
